FAERS Safety Report 5924260-0 (Version None)
Quarter: 2008Q4

REPORT INFORMATION
  Report Type: 
  Country: None (occurrence: None)
  Receive Date: 20081015
  Receipt Date: 20081006
  Transmission Date: 20090506
  Serious: Yes (Hospitalization, Other)
  Sender: FDA-Public Use
  Company Number: GXKR2008DE09150

PATIENT
  Sex: Male

DRUGS (1)
  1. SERTRALINE [Suspect]
     Dosage: MATERNAL DOSE: 100 MG DAILY DURING PREGNANCY. ON 10 SEP 2008 DOSE DECREASED TO 50 MG/DAY., TRANSPLAC
     Route: 064

REACTIONS (3)
  - CONVULSION NEONATAL [None]
  - DRUG EXPOSURE DURING PREGNANCY [None]
  - NEONATAL RESPIRATORY DEPRESSION [None]
